FAERS Safety Report 5447790-7 (Version None)
Quarter: 2007Q3

REPORT INFORMATION
  Report Type: 
  Country: None (occurrence: None)
  Receive Date: 20070910
  Receipt Date: 20070905
  Transmission Date: 20080115
  Serious: Yes (Life-Threatening)
  Sender: FDA-Public Use
  Company Number: CH-ASTRAZENECA-2007PK01845

PATIENT
  Age: 48 Year
  Sex: Male
  Weight: 77 kg

DRUGS (2)
  1. LIDOCAIN [Suspect]
     Indication: ARRHYTHMIA PROPHYLAXIS
     Dosage: BOLUS
     Route: 042
  2. LIDOCAIN [Suspect]
     Dosage: 200 MG IV ONCE
     Route: 042

REACTIONS (3)
  - ACCIDENTAL OVERDOSE [None]
  - APNOEA [None]
  - GRAND MAL CONVULSION [None]
